FAERS Safety Report 10526799 (Version 1)
Quarter: 2014Q4

REPORT INFORMATION
  Report Type: Spontaneous
  Country: US (occurrence: None)
  Receive Date: 20141015
  Receipt Date: 20141015
  Transmission Date: 20150528
  Serious: Yes (Hospitalization, Other)
  Sender: FDA-Public Use
  Company Number: None

PATIENT
  Age: 29 Year
  Sex: Female
  Weight: 64.86 kg

DRUGS (1)
  1. PENICILLIN V [Suspect]
     Active Substance: PENICILLIN V
     Indication: STREPTOCOCCUS TEST POSITIVE
     Route: 048

REACTIONS (5)
  - Fatigue [None]
  - Blood glucose increased [None]
  - Blood glucose fluctuation [None]
  - Headache [None]
  - Syncope [None]

NARRATIVE: CASE EVENT DATE: 20141011
